FAERS Safety Report 5099176-5 (Version None)
Quarter: 2006Q3

REPORT INFORMATION
  Report Type: 
  Country: None (occurrence: None)
  Receive Date: 20060728
  Receipt Date: 20060607
  Transmission Date: 20061208
  Serious: No
  Sender: FDA-Public Use
  Company Number: COT_0558_2006

PATIENT
  Age: 47 Year
  Sex: Female
  Weight: 92.9874 kg

DRUGS (9)
  1. VENTAVIS [Suspect]
     Indication: PULMONARY HYPERTENSION
     Dosage: 5 MCG 6XD IH
     Route: 055
     Dates: start: 20051111
  2. SILDENAFIL [Concomitant]
  3. VITAMIN B COMPLEX CAP [Concomitant]
  4. ZOLOFT [Concomitant]
  5. COUMADIN [Concomitant]
  6. MODURETIC 5-50 [Concomitant]
  7. PROVENTIL [Concomitant]
  8. ALBUTEROL [Concomitant]
  9. ADVAIR DISKUS 100/50 [Concomitant]

REACTIONS (1)
  - PAIN IN EXTREMITY [None]
